FAERS Safety Report 18656525 (Version 2)
Quarter: 2021Q1

REPORT INFORMATION
  Report Type: Spontaneous
  Country: US (occurrence: US)
  Receive Date: 20201223
  Receipt Date: 20210111
  Transmission Date: 20210419
  Serious: Yes (Disabling, Other)
  Sender: FDA-Public Use
  Company Number: US-AUROBINDO-AUR-APL-2020-062310

PATIENT
  Sex: Male

DRUGS (1)
  1. AMIODARONE HYDROCHLORIDE 200 MG TABLET [Suspect]
     Active Substance: AMIODARONE HYDROCHLORIDE
     Indication: ATRIAL FIBRILLATION
     Dosage: UNK
     Route: 065
     Dates: start: 201710

REACTIONS (14)
  - Neurotoxicity [Unknown]
  - Endocrine ophthalmopathy [Unknown]
  - Eye pain [Unknown]
  - Off label use [Unknown]
  - Dizziness [Unknown]
  - Visual impairment [Unknown]
  - Optic nerve disorder [Unknown]
  - Dyspnoea [Unknown]
  - Headache [Unknown]
  - Thyroid function test abnormal [Unknown]
  - Blindness [Unknown]
  - Ocular neoplasm [Unknown]
  - Optic nerve injury [Unknown]
  - Fatigue [Unknown]

NARRATIVE: CASE EVENT DATE: 201811
